FAERS Safety Report 15779988 (Version 2)
Quarter: 2019Q1

REPORT INFORMATION
  Report Type: Report from Study
  Country: ES (occurrence: ES)
  Receive Date: 20190102
  Receipt Date: 20190305
  Transmission Date: 20190417
  Serious: Yes (Hospitalization, Other)
  Sender: FDA-Public Use
  Company Number: ES-ACCORD-099204

PATIENT
  Age: 73 Year
  Sex: Male
  Weight: 81.6 kg

DRUGS (10)
  1. ESOMEPRAZOLE. [Concomitant]
     Active Substance: ESOMEPRAZOLE MAGNESIUM
     Indication: PROPHYLAXIS
     Dosage: CYCLE 1: 720 MG CYCLE 2: 640MG
     Route: 065
     Dates: start: 20000101
  2. SITAGLIPTIN [Concomitant]
     Active Substance: SITAGLIPTIN
     Dosage: CYCLE 1: 720 MG CYCLE 2: 640MG
     Route: 065
     Dates: start: 20130101
  3. AFLIBERCEPT [Suspect]
     Active Substance: AFLIBERCEPT
     Indication: COLORECTAL CANCER METASTATIC
     Route: 041
     Dates: start: 20150617, end: 20150617
  4. IRINOTECAN [Suspect]
     Active Substance: IRINOTECAN
     Indication: COLORECTAL CANCER METASTATIC
     Dosage: CYCLE 1: 320 MG ON 27-MAY-2015 VIA INTRAVENOUS DRIP,ALSO  290 MG INTRAVENOUS DRIP ON 17-JUN-2015
     Route: 040
     Dates: start: 20150617, end: 20150617
  5. FLUOROURACIL. [Suspect]
     Active Substance: FLUOROURACIL
     Indication: COLORECTAL CANCER METASTATIC
     Dosage: 640 MG AND 720 MG FROM 27-MAY-2015 TO 17-JUN-2015 VIA INTRAVENOUS BOLUS,4300 MG ON 27-MAY-2015
     Route: 041
     Dates: start: 20150617, end: 20150617
  6. LEUCOVORIN. [Suspect]
     Active Substance: LEUCOVORIN
     Indication: COLORECTAL CANCER METASTATIC
     Dosage: 720 MG FROM 27-MAY-2015 TO 17-JUN-2015
     Route: 041
     Dates: start: 20150617, end: 20150617
  7. ATORVASTATIN [Concomitant]
     Active Substance: ATORVASTATIN
     Dosage: CYCLE 1: 720 MG CYCLE 2: 640MG
     Route: 065
     Dates: start: 20000101
  8. LEUCOVORIN. [Suspect]
     Active Substance: LEUCOVORIN
     Indication: COLORECTAL CANCER METASTATIC
     Dosage: CICLO 1: 720 MGCICLO 2: 640MG
     Route: 041
     Dates: start: 20150527, end: 20150617
  9. LYRICA [Concomitant]
     Active Substance: PREGABALIN
     Dosage: CYCLE 1: 720 MG CYCLE 2: 640MG
     Route: 065
     Dates: start: 20150526
  10. AFLIBERCEPT [Suspect]
     Active Substance: AFLIBERCEPT
     Indication: COLORECTAL CANCER METASTATIC
     Dosage: ALSO ON 27-MAY-2015
     Route: 041
     Dates: start: 20150617, end: 20150617

REACTIONS (4)
  - Delirium [Recovered/Resolved]
  - Confusional state [Recovered/Resolved]
  - Cholecystitis acute [Recovered/Resolved]
  - Abdominal pain [Recovered/Resolved]

NARRATIVE: CASE EVENT DATE: 20150701
